FAERS Safety Report 7708724-5 (Version None)
Quarter: 2011Q3

REPORT INFORMATION
  Report Type: 
  Country: None (occurrence: None)
  Receive Date: 20110825
  Receipt Date: 20110825
  Transmission Date: 20111222
  Serious: No
  Sender: FDA-Public Use
  Company Number: None

PATIENT
  Age: 59 Year
  Sex: Male
  Weight: 112.49 kg

DRUGS (1)
  1. RISPERDAL [Suspect]
     Indication: SCHIZOPHRENIA
     Dosage: 4MG
     Route: 048

REACTIONS (5)
  - LOSS OF LIBIDO [None]
  - EYE BURNS [None]
  - INSOMNIA [None]
  - VOMITING [None]
  - PRURITUS [None]
